FAERS Safety Report 7977038-0 (Version None)
Quarter: 2011Q4

REPORT INFORMATION
  Report Type: 
  Country: None (occurrence: None)
  Receive Date: 20111213
  Receipt Date: 20111111
  Transmission Date: 20120403
  Serious: No
  Sender: FDA-Public Use
  Company Number: US-AMGEN-USASP2011059716

PATIENT
  Sex: Female

DRUGS (2)
  1. ENBREL [Suspect]
     Indication: RHEUMATOID ARTHRITIS
     Dosage: 50 MG, QWK
     Dates: start: 20000101
  2. PLAQUENIL [Concomitant]
     Dates: start: 20101101

REACTIONS (4)
  - MOBILITY DECREASED [None]
  - NODULE [None]
  - ARTHROPATHY [None]
  - DRUG EFFECT DECREASED [None]
